FAERS Safety Report 5277287-9 (Version None)
Quarter: 2007Q1

REPORT INFORMATION
  Report Type: 
  Country: None (occurrence: None)
  Receive Date: 20070327
  Receipt Date: 20070320
  Transmission Date: 20070707
  Serious: Yes (Other)
  Sender: FDA-Public Use
  Company Number: GB-GLAXOSMITHKLINE-B0463717A

PATIENT
  Age: 42 Year
  Sex: Female

DRUGS (7)
  1. AMOXICILLIN [Suspect]
     Indication: PROPHYLAXIS
     Route: 048
  2. HUMIRA [Suspect]
     Indication: ANKYLOSING SPONDYLITIS
     Dosage: 40MG EVERY TWO WEEKS
     Route: 058
     Dates: start: 20061201, end: 20061201
  3. FOLIC ACID [Concomitant]
     Indication: RHEUMATOID ARTHRITIS
     Dosage: 5MG SEE DOSAGE TEXT
     Route: 048
  4. LANSOPRAZOLE [Concomitant]
     Indication: RHEUMATOID ARTHRITIS
     Dosage: 30MG PER DAY
     Route: 048
     Dates: start: 20020101
  5. MELOXICAM [Concomitant]
     Indication: RHEUMATOID ARTHRITIS
     Dosage: 15MG PER DAY
     Route: 048
     Dates: start: 20060101
  6. METHOTREXATE [Concomitant]
     Indication: RHEUMATOID ARTHRITIS
     Dosage: 20MG WEEKLY
     Route: 048
     Dates: start: 20020101
  7. PREDNISOLONE [Concomitant]
     Indication: RHEUMATOID ARTHRITIS
     Route: 048
     Dates: start: 19990101

REACTIONS (4)
  - HIP ARTHROPLASTY [None]
  - HYPERSENSITIVITY [None]
  - HYPERVENTILATION [None]
  - PARAESTHESIA ORAL [None]
